FAERS Safety Report 22295590 (Version 1)
Quarter: 2023Q2

REPORT INFORMATION
  Report Type: Spontaneous
  Country: US (occurrence: US)
  Receive Date: 20230508
  Receipt Date: 20230508
  Transmission Date: 20230721
  Serious: Yes (Other)
  Sender: FDA-Public Use
  Company Number: US-PFIZER INC-PV202300081178

PATIENT
  Age: 28 Year
  Sex: Male

DRUGS (1)
  1. XELJANZ XR [Suspect]
     Active Substance: TOFACITINIB CITRATE
     Indication: Rheumatoid arthritis
     Dosage: UNK
     Dates: start: 201805

REACTIONS (12)
  - Sjogren^s syndrome [Unknown]
  - Fatigue [Unknown]
  - Joint swelling [Unknown]
  - Musculoskeletal stiffness [Unknown]
  - Eye symptom [Unknown]
  - Headache [Unknown]
  - Gait disturbance [Unknown]
  - Rash [Unknown]
  - Weight decreased [Unknown]
  - Tendonitis [Recovered/Resolved]
  - Joint contracture [Recovered/Resolved]
  - Condition aggravated [Unknown]
